FAERS Safety Report 6211794-7 (Version None)
Quarter: 2009Q2

REPORT INFORMATION
  Report Type: 
  Country: None (occurrence: None)
  Receive Date: 20090602
  Receipt Date: 20090525
  Transmission Date: 20091009
  Serious: Yes (Hospitalization)
  Sender: FDA-Public Use
  Company Number: BR-ROCHE-634804

PATIENT
  Age: 57 Year
  Sex: Male

DRUGS (1)
  1. ISOTRETINOIN [Suspect]
     Indication: THERAPEUTIC SKIN CARE TOPICAL
     Route: 048
     Dates: start: 20060101

REACTIONS (5)
  - ABDOMINAL INFECTION [None]
  - GASTROINTESTINAL MUCOSAL DISORDER [None]
  - LUNG INFECTION [None]
  - THIRST [None]
  - WEIGHT INCREASED [None]
